FAERS Safety Report 6445851-7 (Version None)
Quarter: 2009Q4

REPORT INFORMATION
  Report Type: 
  Country: None (occurrence: None)
  Receive Date: 20091119
  Receipt Date: 20091112
  Transmission Date: 20100525
  Serious: Yes (Hospitalization)
  Sender: FDA-Public Use
  Company Number: US-BIOGENIDEC-2009BI037026

PATIENT
  Age: 1 Day
  Sex: Female

DRUGS (2)
  1. AVONEX [Suspect]
     Indication: DRUG EXPOSURE DURING PREGNANCY
     Route: 030
     Dates: start: 19960101, end: 20030801
  2. AVONEX [Suspect]
     Route: 064
     Dates: start: 20030801, end: 20031101

REACTIONS (1)
  - WEIGHT DECREASE NEONATAL [None]
